FAERS Safety Report 12907151 (Version 1)
Quarter: 2016Q4

REPORT INFORMATION
  Report Type: Spontaneous
  Country: RU (occurrence: RU)
  Receive Date: 20161103
  Receipt Date: 20161103
  Transmission Date: 20170207
  Serious: Yes (Other)
  Sender: FDA-Public Use
  Company Number: RU-BAYER-2016-207508

PATIENT
  Age: 29 Year
  Sex: Female

DRUGS (3)
  1. AMOKSIKLAV [Concomitant]
     Active Substance: AMOXICILLIN\CLAVULANATE POTASSIUM
     Dosage: UNK
  2. YARINA [Suspect]
     Active Substance: DROSPIRENONE\ETHINYL ESTRADIOL
     Dosage: UNK
     Route: 048
  3. THERAFLU FLU COLD [Concomitant]
     Dosage: UNK

REACTIONS (2)
  - Pyelonephritis chronic [None]
  - Tonsillitis [None]
